FAERS Safety Report 7859992-0 (Version None)
Quarter: 2011Q4

REPORT INFORMATION
  Report Type: 
  Country: None (occurrence: None)
  Receive Date: 20111026
  Receipt Date: 20111026
  Transmission Date: 20120403
  Serious: Yes (Hospitalization)
  Sender: FDA-Public Use
  Company Number: None

PATIENT
  Sex: Female

DRUGS (3)
  1. PEGASYS [Suspect]
     Indication: HEPATITIS C
     Dosage: PEGASYS 150MCG QW SQ
     Route: 058
     Dates: start: 20110926, end: 20111005
  2. INCIVEK [Concomitant]
  3. RIBAVIRIN [Suspect]

REACTIONS (2)
  - PLATELET COUNT DECREASED [None]
  - HAEMATOCRIT DECREASED [None]
